FAERS Safety Report 14298746 (Version 1)
Quarter: 2017Q4

REPORT INFORMATION
  Report Type: Spontaneous
  Country: US (occurrence: US)
  Receive Date: 20171216
  Receipt Date: 20171216
  Transmission Date: 20180321
  Serious: Yes (Life-Threatening)
  Sender: FDA-Public Use
  Company Number: None

PATIENT
  Age: 75 Year
  Sex: Female
  Weight: 182 kg

DRUGS (1)
  1. IOHEXOL [Suspect]
     Active Substance: IOHEXOL
     Indication: CARDIOVASCULAR DISORDER
     Route: 042
     Dates: start: 20171109, end: 20171109

REACTIONS (2)
  - Swollen tongue [None]
  - Throat tightness [None]

NARRATIVE: CASE EVENT DATE: 20171109
